FAERS Safety Report 8618176 (Version 2)
Quarter: 2012Q4

REPORT INFORMATION
  Report Type: 
  Country: US (occurrence: US)
  Receive Date: 20120615
  Receipt Date: 20121119
  Transmission Date: 20130627
  Serious: Yes (Other)
  Sender: FDA-Public Use
  Company Number: US-ASTRAZENECA-2012SE36732

PATIENT
  Age: 56 Year
  Sex: Male
  Weight: 118.4 kg

DRUGS (6)
  1. CAPRELSA [Suspect]
     Indication: THYROID CANCER
     Route: 048
     Dates: start: 20120229, end: 201207
  2. CAPRELSA [Suspect]
     Indication: THYROID CANCER
     Route: 048
     Dates: start: 20121030
  3. CALCITRIOL [Concomitant]
     Route: 048
  4. IMODIUM AD [Concomitant]
     Route: 048
  5. LISINOPRIL [Concomitant]
     Route: 048
  6. SYNTHROID [Concomitant]
     Route: 048

REACTIONS (8)
  - Hordeolum [Not Recovered/Not Resolved]
  - Acne [Recovering/Resolving]
  - Epistaxis [Not Recovered/Not Resolved]
  - Erythema [Unknown]
  - Erythema [Unknown]
  - Renal failure [Recovering/Resolving]
  - Blood creatinine increased [Recovering/Resolving]
  - Oedema [Unknown]
